FAERS Safety Report 9201038 (Version 2)
Quarter: 2013Q2

REPORT INFORMATION
  Report Type: Spontaneous
  Country: JP (occurrence: JP)
  Receive Date: 20130401
  Receipt Date: 20130425
  Transmission Date: 20140414
  Serious: Yes (Hospitalization)
  Sender: FDA-Public Use
  Company Number: JP-JNJFOC-20130315193

PATIENT
  Age: 55 Year
  Sex: Male
  Weight: 68 kg

DRUGS (9)
  1. REMICADE [Suspect]
     Indication: PSORIASIS
     Dosage: 16TH DOSE
     Route: 042
     Dates: start: 20121205
  2. REMICADE [Suspect]
     Indication: PSORIASIS
     Dosage: FIRST DOSE
     Route: 042
     Dates: start: 20100324
  3. ISCOTIN [Concomitant]
     Indication: ANTIBIOTIC PROPHYLAXIS
     Route: 048
     Dates: start: 20100303, end: 20110303
  4. OXAROL [Concomitant]
     Indication: PSORIASIS
     Route: 065
  5. HEPARINOID [Concomitant]
     Indication: PSORIASIS
     Dosage: 051
     Route: 065
  6. BETAMETHASONE SODIUM PHOSPHATE [Concomitant]
     Indication: PSORIASIS
     Route: 065
  7. RINDERON-VG [Concomitant]
     Indication: PSORIASIS
     Route: 065
  8. ALESION [Concomitant]
     Indication: PREMEDICATION
     Route: 048
  9. BRUFEN [Concomitant]
     Indication: PREMEDICATION
     Route: 048

REACTIONS (3)
  - Cell marker increased [Not Recovered/Not Resolved]
  - Interstitial lung disease [Not Recovered/Not Resolved]
  - Antinuclear antibody increased [Unknown]
